FAERS Safety Report 7611806-X (Version None)
Quarter: 2011Q3

REPORT INFORMATION
  Report Type: 
  Country: None (occurrence: None)
  Receive Date: 20110715
  Receipt Date: 20110711
  Transmission Date: 20111222
  Serious: Yes (Death)
  Sender: FDA-Public Use
  Company Number: PE-PFIZER INC-2011122461

PATIENT
  Age: 96 Year
  Sex: Female

DRUGS (1)
  1. XALATAN [Suspect]
     Indication: GLAUCOMA
     Dosage: 0.03 MG ONCE DAILY
     Route: 047
     Dates: start: 19910101

REACTIONS (1)
  - CARDIAC ARREST [None]
